FAERS Safety Report 4677614-7 (Version None)
Quarter: 2005Q2

REPORT INFORMATION
  Report Type: 
  Country: None (occurrence: None)
  Receive Date: 20050531
  Receipt Date: 20050516
  Transmission Date: 20051028
  Serious: Yes (Other)
  Sender: FDA-Public Use
  Company Number: PHBS2005CA06799

PATIENT

DRUGS (1)
  1. EXELON [Suspect]
     Dosage: 4.5 MG, BID
     Route: 048

REACTIONS (1)
  - GASTROINTESTINAL ANGIODYSPLASIA HAEMORRHAGIC [None]
